FAERS Safety Report 5488607-4 (Version None)
Quarter: 2007Q4

REPORT INFORMATION
  Report Type: 
  Country: None (occurrence: None)
  Receive Date: 20071017
  Receipt Date: 20071016
  Transmission Date: 20080405
  Serious: Yes (Life-Threatening)
  Sender: FDA-Public Use
  Company Number: GBWYE375626SEP07

PATIENT
  Sex: Male
  Weight: 86.9 kg

DRUGS (41)
  1. GEMTUZUMAB OZOGAMICIN [Suspect]
     Indication: ACUTE MYELOID LEUKAEMIA
     Dosage: 5 MG EVERY 1 TOT
     Route: 042
     Dates: start: 20070913, end: 20070913
  2. ETOPOSIDE [Suspect]
     Indication: ACUTE MYELOID LEUKAEMIA
     Route: 042
     Dates: start: 20070914, end: 20070918
  3. CYTARABINE [Suspect]
     Route: 042
     Dates: start: 20070914, end: 20070918
  4. ATORVASTATIN CALCIUM [Concomitant]
     Route: 048
     Dates: start: 20070601, end: 20070925
  5. CIPROFLOXACIN [Concomitant]
     Indication: PROPHYLAXIS
     Route: 048
     Dates: start: 20070707, end: 20070713
  6. CIPROFLOXACIN [Concomitant]
     Route: 048
     Dates: start: 20070916, end: 20070921
  7. METRONIDAZOLE [Concomitant]
     Indication: PROPHYLAXIS
     Route: 048
     Dates: start: 20070713, end: 20070715
  8. METRONIDAZOLE [Concomitant]
     Route: 042
     Dates: start: 20070818, end: 20070822
  9. GENTAMICIN [Concomitant]
     Indication: PROPHYLAXIS
     Route: 042
     Dates: start: 20070713, end: 20070719
  10. GENTAMICIN [Concomitant]
     Route: 042
     Dates: start: 20070816
  11. TAZOCIN [Concomitant]
     Route: 042
     Dates: start: 20070713
  12. TAZOCIN [Concomitant]
     Route: 042
     Dates: start: 20070816, end: 20070822
  13. FLUCLOXACILLIN [Concomitant]
     Route: 048
     Dates: start: 20070912, end: 20070917
  14. TEICOPLANIN [Concomitant]
     Route: 042
     Dates: start: 20070603, end: 20070605
  15. TEICOPLANIN [Concomitant]
     Route: 042
     Dates: start: 20070911, end: 20070912
  16. DOMPERIDONE [Concomitant]
     Indication: ANTIEMETIC SUPPORTIVE CARE
     Route: 048
     Dates: start: 20070703, end: 20070714
  17. DOMPERIDONE [Concomitant]
     Route: 048
     Dates: start: 20070806
  18. DOMPERIDONE [Concomitant]
     Route: 048
     Dates: start: 20070911, end: 20070921
  19. HYDROXYUREA [Concomitant]
     Indication: WHITE BLOOD CELL COUNT INCREASED
     Route: 048
     Dates: start: 20070628
  20. FRUSEMIDE [Concomitant]
     Route: 048
     Dates: start: 20070704
  21. AMLODIPINE [Concomitant]
     Route: 048
     Dates: start: 20070704, end: 20070722
  22. ESCITALOPRAM OXALATE [Concomitant]
     Route: 048
     Dates: start: 20070601, end: 20070722
  23. DAUNORUBICIN [Concomitant]
     Indication: ACUTE MYELOID LEUKAEMIA
     Dosage: 105MG, DAILY ON DAY 1, 3, 5
     Route: 042
     Dates: start: 20070702
  24. DAUNORUBICIN [Concomitant]
     Dosage: 100MG DAILY ON DAY 1, 3, 5
     Route: 042
     Dates: start: 20070806, end: 20070810
  25. ETOPOSIDE [Concomitant]
     Route: 042
     Dates: start: 20070702, end: 20070706
  26. ETOPOSIDE [Concomitant]
     Route: 042
     Dates: start: 20070806, end: 20070810
  27. CYTARABINE [Concomitant]
     Indication: ACUTE MYELOID LEUKAEMIA
     Route: 042
     Dates: start: 20070702, end: 20070712
  28. CYTARABINE [Concomitant]
     Route: 042
     Dates: start: 20070806, end: 20070814
  29. GRANISETRON  HCL [Concomitant]
     Indication: ANTIEMETIC SUPPORTIVE CARE
     Route: 042
     Dates: start: 20070702, end: 20070709
  30. GRANISETRON  HCL [Concomitant]
     Route: 042
     Dates: start: 20070806
  31. GRANISETRON  HCL [Concomitant]
     Route: 058
     Dates: start: 20070914, end: 20070919
  32. ALLOPURINOL [Concomitant]
     Indication: PROPHYLAXIS
     Route: 048
     Dates: start: 20070702, end: 20070712
  33. LACTULOSE [Concomitant]
     Route: 048
     Dates: start: 20070704, end: 20070710
  34. LOPERAMIDE HCL [Concomitant]
     Route: 048
     Dates: start: 20070715, end: 20070717
  35. LOPERAMIDE HCL [Concomitant]
     Route: 048
     Dates: start: 20070717, end: 20070722
  36. SANDO K [Concomitant]
     Route: 048
     Dates: start: 20070715
  37. MEROPENEM [Concomitant]
     Route: 042
     Dates: start: 20070719, end: 20070722
  38. LENOGRASTIM [Concomitant]
     Indication: NEUTROPENIA
     Route: 058
     Dates: start: 20070720
  39. VANCOMYCIN [Concomitant]
     Route: 042
     Dates: start: 20070816
  40. CEFTAZIDIME [Concomitant]
     Route: 042
     Dates: start: 20070824
  41. AMSACRINE [Suspect]
     Indication: ACUTE MYELOID LEUKAEMIA
     Route: 042
     Dates: start: 20070914, end: 20070918

REACTIONS (5)
  - ALANINE AMINOTRANSFERASE INCREASED [None]
  - BLOOD BILIRUBIN INCREASED [None]
  - C-REACTIVE PROTEIN INCREASED [None]
  - GAMMA-GLUTAMYLTRANSFERASE INCREASED [None]
  - VENOOCCLUSIVE LIVER DISEASE [None]
